FAERS Safety Report 25851935 (Version 3)
Quarter: 2025Q4

REPORT INFORMATION
  Report Type: Spontaneous
  Country: US (occurrence: US)
  Receive Date: 20250926
  Receipt Date: 20251021
  Transmission Date: 20260118
  Serious: No
  Sender: LUPIN
  Company Number: US-LUPIN PHARMACEUTICALS INC.-2025-08558

PATIENT
  Age: 57 Year
  Weight: 58.503 kg

DRUGS (2)
  1. LEVOTHYROXINE SODIUM [Suspect]
     Active Substance: LEVOTHYROXINE SODIUM
     Indication: Thyroid cancer
     Dosage: UNK
     Route: 065
  2. VITAMINS [Concomitant]
     Active Substance: VITAMINS
     Indication: Product used for unknown indication
     Dosage: UNK
     Route: 065

REACTIONS (16)
  - Thyroid disorder [Unknown]
  - Illness [Unknown]
  - Malaise [Unknown]
  - Decreased appetite [Unknown]
  - Asthenia [Unknown]
  - Feeling hot [Unknown]
  - Palpitations [Unknown]
  - Weight increased [Unknown]
  - Therapeutic product effect increased [Unknown]
  - Product taste abnormal [Unknown]
  - Product substitution issue [Unknown]
  - Metabolic disorder [Unknown]
  - Loss of personal independence in daily activities [Unknown]
  - Bowel movement irregularity [Unknown]
  - Rash [Unknown]
  - Onychoclasis [Unknown]
